FAERS Safety Report 23424227 (Version 1)
Quarter: 2024Q1

REPORT INFORMATION
  Report Type: Spontaneous
  Country: GB (occurrence: GB)
  Receive Date: 20240120
  Receipt Date: 20240120
  Transmission Date: 20240409
  Serious: Yes (Hospitalization)
  Sender: FDA-Public Use
  Company Number: None

PATIENT

DRUGS (1)
  1. HALOPERIDOL [Suspect]
     Active Substance: HALOPERIDOL
     Indication: Product used for unknown indication
     Route: 065

REACTIONS (4)
  - Swollen tongue [Recovered/Resolved]
  - Heart rate increased [Recovered/Resolved]
  - Musculoskeletal stiffness [Recovered/Resolved]
  - Tremor [Recovered/Resolved]
